FAERS Safety Report 14455892 (Version 1)
Quarter: 2018Q1

REPORT INFORMATION
  Report Type: Spontaneous
  Country: FR (occurrence: FR)
  Receive Date: 20180130
  Receipt Date: 20180130
  Transmission Date: 20180509
  Serious: Yes (Other)
  Sender: FDA-Public Use
  Company Number: FR-MERCK KGAA-2041015

PATIENT
  Age: 74 Year
  Sex: Female
  Weight: 82 kg

DRUGS (1)
  1. NOVOTHYROX [Suspect]
     Active Substance: LEVOTHYROXINE SODIUM
     Indication: HYPOTHYROIDISM
     Route: 048
     Dates: start: 20170501, end: 20171101

REACTIONS (4)
  - Muscle spasms [Recovering/Resolving]
  - Night sweats [Recovering/Resolving]
  - Alopecia [Recovering/Resolving]
  - Blood thyroid stimulating hormone normal [Unknown]

NARRATIVE: CASE EVENT DATE: 20170615
